FAERS Safety Report 8852883 (Version 1)
Quarter: 2012Q4

REPORT INFORMATION
  Report Type: 
  Country: TR (occurrence: TR)
  Receive Date: 20121022
  Receipt Date: 20121022
  Transmission Date: 20130627
  Serious: Yes (Hospitalization, Other)
  Sender: FDA-Public Use
  Company Number: TR-PFIZER INC-2012258030

PATIENT
  Age: 61 Year
  Sex: Female

DRUGS (2)
  1. SUNITINIB MALATE [Suspect]
     Dosage: 50 mg, 1x/day
  2. SORAFENIB [Suspect]
     Dosage: 800 mg, 1x/day

REACTIONS (6)
  - Focal segmental glomerulosclerosis [Unknown]
  - Proteinuria [Unknown]
  - Blood pressure increased [Recovered/Resolved]
  - Generalised oedema [Unknown]
  - General physical health deterioration [Unknown]
  - Fatigue [Unknown]
